FAERS Safety Report 4602635-X (Version None)
Quarter: 2005Q1

REPORT INFORMATION
  Report Type: 
  Country: None (occurrence: None)
  Receive Date: 20050309
  Receipt Date: 20050225
  Transmission Date: 20050727
  Serious: Yes (Disabling)
  Sender: FDA-Public Use
  Company Number: GB-BRISTOL-MYERS SQUIBB COMPANY-12876512

PATIENT
  Age: 75 Year
  Sex: Male

DRUGS (4)
  1. HYDROXYCARBAMIDE [Suspect]
     Indication: CHRONIC MYELOID LEUKAEMIA
     Route: 048
     Dates: start: 20010101, end: 20041109
  2. LANSOPRAZOLE [Concomitant]
     Indication: ANTACID THERAPY
     Route: 048
     Dates: start: 20010101, end: 20040501
  3. ASPIRIN [Concomitant]
     Indication: ANTIPLATELET THERAPY
     Route: 048
     Dates: start: 20010101
  4. ALLOPURINOL [Concomitant]
     Route: 048
     Dates: start: 20010101

REACTIONS (2)
  - PYODERMA GANGRENOSUM [None]
  - SKIN ULCER [None]
